FAERS Safety Report 20646384 (Version 2)
Quarter: 2022Q3

REPORT INFORMATION
  Report Type: Report from Study
  Country: CO (occurrence: CO)
  Receive Date: 20220329
  Receipt Date: 20220725
  Transmission Date: 20221027
  Serious: Yes (Other)
  Sender: FDA-Public Use
  Company Number: CO-ABBVIE-22K-036-4273667-00

PATIENT
  Sex: Female
  Weight: 54 kg

DRUGS (2)
  1. HUMIRA [Suspect]
     Active Substance: ADALIMUMAB
     Indication: Colitis ulcerative
     Route: 058
     Dates: start: 20170525
  2. HUMIRA [Suspect]
     Active Substance: ADALIMUMAB
     Indication: Colitis ulcerative
     Dosage: CITRATE FREE
     Route: 058
     Dates: end: 20220118

REACTIONS (3)
  - Uterine polyp [Recovering/Resolving]
  - Blood urine present [Recovering/Resolving]
  - Hormone level abnormal [Not Recovered/Not Resolved]

NARRATIVE: CASE EVENT DATE: 20210101
